FAERS Safety Report 6860053-8 (Version None)
Quarter: 2010Q3

REPORT INFORMATION
  Report Type: 
  Country: None (occurrence: None)
  Receive Date: 20100720
  Receipt Date: 20100708
  Transmission Date: 20110219
  Serious: Yes (Death)
  Sender: FDA-Public Use
  Company Number: JP-PFIZER INC-2010089078

PATIENT
  Age: 83 Year
  Sex: Female
  Weight: 51 kg

DRUGS (4)
  1. CAMPTOSAR [Suspect]
     Indication: COLORECTAL CANCER
     Dosage: 200 MG (139.9 MG/M2), CYCLIC
     Route: 041
     Dates: start: 20100219, end: 20100318
  2. CALCIUM LEVOFOLINATE [Concomitant]
     Indication: COLORECTAL CANCER
     Dosage: 300 MG (209.8 MG/M2), CYCLIC
     Route: 041
     Dates: start: 20100219, end: 20100318
  3. FLUOROURACIL [Concomitant]
     Indication: COLORECTAL CANCER
     Dosage: 500 MG (349.7 MG/M2), CYCLIC
     Route: 040
     Dates: start: 20100219, end: 20100318
  4. FLUOROURACIL [Concomitant]
     Dosage: 3000 MG (2097.9 MG/M2), CYCLIC
     Route: 041
     Dates: start: 20100219, end: 20100318

REACTIONS (1)
  - CEREBRAL HAEMORRHAGE [None]
